FAERS Safety Report 14097429 (Version 1)
Quarter: 2017Q4

REPORT INFORMATION
  Report Type: Spontaneous
  Country: US (occurrence: US)
  Receive Date: 20171017
  Receipt Date: 20171017
  Transmission Date: 20180321
  Serious: No
  Sender: FDA-Public Use
  Company Number: US-WEST-WARD PHARMACEUTICALS CORP.-US-H14001-17-01486

PATIENT
  Age: 70 Year
  Sex: Male

DRUGS (2)
  1. TESTOSTERONE ENANTHATE. [Suspect]
     Active Substance: TESTOSTERONE ENANTHATE
     Indication: BLOOD TESTOSTERONE DECREASED
  2. TESTOSTERONE ENANTHATE. [Suspect]
     Active Substance: TESTOSTERONE ENANTHATE
     Indication: ERECTILE DYSFUNCTION
     Route: 065
     Dates: start: 201611

REACTIONS (2)
  - Drug ineffective [Unknown]
  - Libido decreased [Recovering/Resolving]
